FAERS Safety Report 19025004 (Version 1)
Quarter: 2021Q1

REPORT INFORMATION
  Report Type: Spontaneous
  Country: CH (occurrence: CH)
  Receive Date: 20210318
  Receipt Date: 20210318
  Transmission Date: 20210420
  Serious: Yes (Other)
  Sender: FDA-Public Use
  Company Number: CH-UCBSA-2021011913

PATIENT
  Sex: Female

DRUGS (3)
  1. REMICADE [Suspect]
     Active Substance: INFLIXIMAB
     Indication: AXIAL SPONDYLOARTHRITIS
     Dosage: 200 MILLIGRAM, EV 8 WEEKS
     Route: 042
     Dates: start: 20100118, end: 20100604
  2. HUMIRA [Suspect]
     Active Substance: ADALIMUMAB
     Indication: AXIAL SPONDYLOARTHRITIS
     Dosage: 40 MILLIGRAM, EVERY 0.5 WEEK
     Route: 058
     Dates: start: 20100613, end: 20160507
  3. CIMZIA [Suspect]
     Active Substance: CERTOLIZUMAB PEGOL
     Indication: AXIAL SPONDYLOARTHRITIS
     Dosage: 200 MILLIGRAM, EV 4 WEEKS
     Route: 058
     Dates: start: 20161019

REACTIONS (2)
  - Product use issue [Unknown]
  - Papillary thyroid cancer [Recovered/Resolved]

NARRATIVE: CASE EVENT DATE: 20161019
